FAERS Safety Report 13356507 (Version 1)
Quarter: 2017Q1

REPORT INFORMATION
  Report Type: Spontaneous
  Country: AU (occurrence: AU)
  Receive Date: 20170321
  Receipt Date: 20170321
  Transmission Date: 20170429
  Serious: Yes (Other)
  Sender: FDA-Public Use
  Company Number: AU-PFIZER INC-HQWYE877419APR06

PATIENT
  Age: 17 Year
  Sex: Male

DRUGS (1)
  1. EFEXOR [Suspect]
     Active Substance: VENLAFAXINE HYDROCHLORIDE
     Dosage: UNK
     Route: 048

REACTIONS (9)
  - Vomiting [Unknown]
  - Insomnia [Unknown]
  - Drug withdrawal syndrome [Unknown]
  - Homicidal ideation [Unknown]
  - Suicidal ideation [Unknown]
  - Violence-related symptom [Unknown]
  - Paranoia [Unknown]
  - Restlessness [Unknown]
  - Irritability [Unknown]
